FAERS Safety Report 9649276 (Version 1)
Quarter: 2013Q4

REPORT INFORMATION
  Report Type: Spontaneous
  Country: US (occurrence: None)
  Receive Date: 20131018
  Receipt Date: 20131018
  Transmission Date: 20140711
  Serious: No
  Sender: FDA-Public Use
  Company Number: AEGR000100

PATIENT
  Age: 75 Year
  Sex: Male
  Weight: 80.3 kg

DRUGS (5)
  1. JUXTAPID [Suspect]
     Indication: TYPE IIA HYPERLIPIDAEMIA
     Route: 048
     Dates: start: 20130428
  2. DOCUSATE (DOCUSATE) [Concomitant]
  3. CLARITIN (GLICLAZIDE) [Concomitant]
  4. MAGNESIUM GLUCONATE (MAGNESIUM GLUCONATE) [Concomitant]
  5. OMEGA 3 (FISH OIL) [Concomitant]

REACTIONS (1)
  - Constipation [None]
